FAERS Safety Report 17483638 (Version 1)
Quarter: 2020Q1

REPORT INFORMATION
  Report Type: Spontaneous
  Country: US (occurrence: US)
  Receive Date: 20200302
  Receipt Date: 20200302
  Transmission Date: 20200409
  Serious: Yes (Other)
  Sender: FDA-Public Use
  Company Number: US-AKORN PHARMACEUTICALS-2020AKN00256

PATIENT
  Sex: Male
  Weight: 122.45 kg

DRUGS (3)
  1. MYORISAN [Suspect]
     Active Substance: ISOTRETINOIN
     Indication: ACNE
     Dosage: 40 MG, 2X/DAY
     Dates: start: 20191224, end: 20200129
  2. MYORISAN [Suspect]
     Active Substance: ISOTRETINOIN
     Indication: ACNE
     Dosage: UNK
     Dates: start: 20191119
  3. ISOTRETINOIN (AMNEAL PHARMACEUTICALS, LLC) [Suspect]
     Active Substance: ISOTRETINOIN
     Indication: ACNE
     Dosage: UNK
     Dates: start: 20191115

REACTIONS (3)
  - Seasonal affective disorder [Recovering/Resolving]
  - Depression [Recovering/Resolving]
  - Stress [Recovering/Resolving]
